FAERS Safety Report 5644119-6 (Version None)
Quarter: 2008Q1

REPORT INFORMATION
  Report Type: 
  Country: None (occurrence: None)
  Receive Date: 20080226
  Receipt Date: 20080215
  Transmission Date: 20080703
  Serious: Yes (Other)
  Sender: FDA-Public Use
  Company Number: A0710767A

PATIENT
  Sex: Male

DRUGS (2)
  1. ADVAIR (FORMULATION UNKNOWN) (FLUTICASONE+SALMETEROL) [Suspect]
     Indication: DRUG USE FOR UNKNOWN INDICATION
     Dosage: INHALED
     Route: 055
  2. WARFARIN SODIUM [Concomitant]

REACTIONS (1)
  - THROMBOSIS [None]
